FAERS Safety Report 14751844 (Version 1)
Quarter: 2018Q2

REPORT INFORMATION
  Report Type: Spontaneous
  Country: US (occurrence: US)
  Receive Date: 20180412
  Receipt Date: 20180412
  Transmission Date: 20180711
  Serious: No
  Sender: FDA-Public Use
  Company Number: US-GLAXOSMITHKLINE-US2018061538

PATIENT
  Age: 61 Year
  Sex: Female

DRUGS (26)
  1. ADVAIR DISKUS [Suspect]
     Active Substance: FLUTICASONE PROPIONATE\SALMETEROL XINAFOATE
     Indication: CHRONIC OBSTRUCTIVE PULMONARY DISEASE
     Route: 055
  2. VENTOLIN HFA [Suspect]
     Active Substance: ALBUTEROL SULFATE
     Indication: CHRONIC OBSTRUCTIVE PULMONARY DISEASE
     Route: 055
  3. AMLODIPINE [Concomitant]
     Active Substance: AMLODIPINE BESYLATE
  4. ALBUTEROL AND IPRATROPIUM NEBULE [Concomitant]
     Active Substance: ALBUTEROL\IPRATROPIUM
  5. NEILMED SINUS RINSE [Concomitant]
     Active Substance: SODIUM BICARBONATE\SODIUM CHLORIDE
  6. AZO CRANBERRY [Concomitant]
     Active Substance: DIETARY SUPPLEMENT
  7. BENZONATATE. [Concomitant]
     Active Substance: BENZONATATE
  8. GLUCOSAMINE + CHONDROITIN [Concomitant]
     Active Substance: CHONDROITIN SULFATE (BOVINE)\GLUCOSAMINE HYDROCHLORIDE
  9. HYDROCHLOROTHIAZIDE. [Concomitant]
     Active Substance: HYDROCHLOROTHIAZIDE
  10. OXYBUTIN [Concomitant]
     Active Substance: OXYBUTYNIN
  11. TRAMADOL. [Concomitant]
     Active Substance: TRAMADOL
  12. NEXIUM [Concomitant]
     Active Substance: ESOMEPRAZOLE MAGNESIUM
  13. BOTOX [Concomitant]
     Active Substance: ONABOTULINUMTOXINA
  14. FIORICET [Concomitant]
     Active Substance: ACETAMINOPHEN\BUTALBITAL\CAFFEINE
  15. MONTELUKAST [Concomitant]
     Active Substance: MONTELUKAST SODIUM
  16. DEPAKOTE [Concomitant]
     Active Substance: DIVALPROEX SODIUM
  17. ACETAMINOPHEN. [Concomitant]
     Active Substance: ACETAMINOPHEN
  18. PHILLIPS COLON HEALTH [Concomitant]
  19. SIMVASTATIN. [Concomitant]
     Active Substance: SIMVASTATIN
  20. BREO ELLIPTA [Suspect]
     Active Substance: FLUTICASONE FUROATE\VILANTEROL TRIFENATATE
     Indication: CHRONIC OBSTRUCTIVE PULMONARY DISEASE
     Dosage: 1 PUFF(S), QD
     Route: 055
     Dates: start: 2018
  21. ABILIFY [Concomitant]
     Active Substance: ARIPIPRAZOLE
  22. ONDANSETRON [Concomitant]
     Active Substance: ONDANSETRON
  23. COLACE [Concomitant]
     Active Substance: DOCUSATE SODIUM
  24. XARELTO [Concomitant]
     Active Substance: RIVAROXABAN
  25. CARVEDILOL. [Concomitant]
     Active Substance: CARVEDILOL
  26. FLUCONAZOLE. [Concomitant]
     Active Substance: FLUCONAZOLE

REACTIONS (8)
  - Suffocation feeling [Unknown]
  - Labelled drug-drug interaction medication error [Unknown]
  - Peak expiratory flow rate abnormal [Unknown]
  - Panic reaction [Unknown]
  - Dysphonia [Unknown]
  - Drug ineffective [Unknown]
  - Product use issue [Unknown]
  - Product use in unapproved indication [Unknown]

NARRATIVE: CASE EVENT DATE: 2018
